FAERS Safety Report 8968220 (Version 1)
Quarter: 2012Q4

REPORT INFORMATION
  Report Type: Spontaneous
  Country: US (occurrence: None)
  Receive Date: 20121213
  Receipt Date: 20121213
  Transmission Date: 20130627
  Serious: Yes (Hospitalization)
  Sender: FDA-Public Use
  Company Number: None

PATIENT
  Age: 58 Year
  Sex: Male
  Weight: 94 kg

DRUGS (13)
  1. WARFARIN [Suspect]
     Route: 048
     Dates: start: 20120714, end: 20120717
  2. ACETAMINOPHEN [Concomitant]
  3. AMLODIPINE TAB [Concomitant]
  4. CARVEDILOL TAB [Concomitant]
  5. FUROSEMIDE TAB [Concomitant]
  6. GALANTAMINE [Concomitant]
  7. GLIPIZIDE (HYPOGLYCEMICS) [Concomitant]
  8. HYDRALAZINE [Concomitant]
  9. LISINOPRIL TAB [Concomitant]
  10. MEMANTINE TAB [Concomitant]
  11. OMEPRAZOLE [Concomitant]
  12. SERTRALINE TAB [Concomitant]
  13. WARFARIN TAB [Concomitant]

REACTIONS (2)
  - Gastric haemorrhage [None]
  - Haemoglobin decreased [None]
